FAERS Safety Report 23169252 (Version 2)
Quarter: 2023Q4

REPORT INFORMATION
  Report Type: Spontaneous
  Country: CH (occurrence: CH)
  Receive Date: 20231110
  Receipt Date: 20231114
  Transmission Date: 20240110
  Serious: Yes (Other)
  Sender: FDA-Public Use
  Company Number: None

PATIENT
  Age: 63 Year
  Sex: Male

DRUGS (13)
  1. BACTRIM [Suspect]
     Active Substance: SULFAMETHOXAZOLE\TRIMETHOPRIM
     Indication: Product used for unknown indication
     Dosage: STARTED WITH SPIRICORT THERAPY, 1 TABLET 800MG/160MG ON MONDAYS, WEDNESDAYS AND FRIDAYS ; CYCLICAL
     Route: 048
     Dates: start: 202303, end: 20230719
  2. MABTHERA [Suspect]
     Active Substance: RITUXIMAB
     Indication: Mantle cell lymphoma
     Dosage: DOSAGE UNKNOWN
     Route: 041
     Dates: start: 20200325, end: 202301
  3. PANTOPRAZOLE SODIUM [Suspect]
     Active Substance: PANTOPRAZOLE SODIUM
     Indication: Product used for unknown indication
     Dosage: START DATE MAY ALSO BE EARLIER, DOCUMENTATION STARTS ON THIS DAY
     Route: 048
     Dates: start: 20230531, end: 20230719
  4. HYRIMOZ [Suspect]
     Active Substance: ADALIMUMAB-ADAZ
     Indication: Seronegative arthritis
     Route: 058
     Dates: start: 20230426, end: 20230705
  5. PREGABALIN [Suspect]
     Active Substance: PREGABALIN
     Indication: Product used for unknown indication
     Dosage: START DATE AFTER 2023/05/31
     Route: 048
     Dates: start: 202306, end: 20230719
  6. MAGNESIUM [Concomitant]
     Active Substance: MAGNESIUM
     Dosage: DOSAGE AND PRODUCT UNKNOWN. START DATE AFTER 2023/05/31
     Route: 048
     Dates: start: 202306, end: 20230719
  7. CALCIUM\CHOLECALCIFEROL [Concomitant]
     Active Substance: CALCIUM\CHOLECALCIFEROL
     Dosage: START DATE MAY  BE EARLIER, DOCUMENTATION STARTS ON THIS DAY. 1000MG/800 IE 1X PER DAY.
     Route: 048
     Dates: start: 20230531, end: 20230719
  8. ALENDRONATE SODIUM [Concomitant]
     Active Substance: ALENDRONATE SODIUM
     Dosage: START DATE MAY  BE EARLIER, DOCUMENTATION STARTS ON THIS DAY
     Route: 048
     Dates: start: 20230531, end: 20230719
  9. PREDNISOLONE [Concomitant]
     Active Substance: PREDNISOLONE
     Indication: Seronegative arthritis
     Dosage: INITIALLY 40MG/D AND SLOWLY DECREASED AFTERWARDS, BUT IT IS UNCLEAR WHEN THE DOSE WAS REDUCED
     Route: 048
     Dates: start: 20230604
  10. PREDNISOLONE [Concomitant]
     Active Substance: PREDNISOLONE
     Indication: Seronegative arthritis
     Route: 048
     Dates: start: 20230313, end: 20230320
  11. PREDNISOLONE [Concomitant]
     Active Substance: PREDNISOLONE
     Indication: Seronegative arthritis
     Route: 048
     Dates: start: 20230329, end: 20230402
  12. METOPROLOL [Concomitant]
     Active Substance: METOPROLOL
  13. ROSUVASTATIN [Concomitant]
     Active Substance: ROSUVASTATIN
     Route: 048
     Dates: start: 202306, end: 20230719

REACTIONS (7)
  - Agranulocytosis [Recovered/Resolved]
  - Bronchopulmonary aspergillosis [Recovered/Resolved]
  - Stomatitis [Recovered/Resolved]
  - Oral herpes [Recovered/Resolved]
  - Anaemia [Recovered/Resolved]
  - Jugular vein thrombosis [Unknown]
  - Pulmonary embolism [Unknown]

NARRATIVE: CASE EVENT DATE: 20230713
